FAERS Safety Report 6241095-2 (Version None)
Quarter: 2009Q2

REPORT INFORMATION
  Report Type: 
  Country: None (occurrence: None)
  Receive Date: 20090619
  Receipt Date: 20090619
  Transmission Date: 20091009
  Serious: Yes (Other)
  Sender: FDA-Public Use
  Company Number: None

PATIENT
  Age: 3 Year
  Sex: Female
  Weight: 12.7007 kg

DRUGS (2)
  1. NASONEX [Suspect]
     Indication: ADENOIDAL HYPERTROPHY
     Dosage: 2 SPRAYS INTO EACH NOSTRIL ONCE AT BEDTIME NASAL
     Route: 045
     Dates: start: 20090423, end: 20090426
  2. NASONEX [Suspect]
     Indication: MIDDLE EAR EFFUSION
     Dosage: 2 SPRAYS INTO EACH NOSTRIL ONCE AT BEDTIME NASAL
     Route: 045
     Dates: start: 20090423, end: 20090426

REACTIONS (5)
  - EAR PAIN [None]
  - HEADACHE [None]
  - MUSCLE SPASMS [None]
  - PAIN [None]
  - SCREAMING [None]
